FAERS Safety Report 23284699 (Version 1)
Quarter: 2023Q4

REPORT INFORMATION
  Report Type: Spontaneous
  Country: CN (occurrence: CN)
  Receive Date: 20231211
  Receipt Date: 20231211
  Transmission Date: 20240110
  Serious: Yes (Hospitalization, Other)
  Sender: FDA-Public Use
  Company Number: CN-PFIZER INC-PV202300199229

PATIENT
  Age: 71 Year
  Sex: Male
  Weight: 73 kg

DRUGS (2)
  1. METHOTREXATE SODIUM [Suspect]
     Active Substance: METHOTREXATE SODIUM
     Indication: Central nervous system neoplasm
     Dosage: 5 G, 1X/DAY
     Route: 041
     Dates: start: 20231028, end: 20231028
  2. TEMOZOLOMIDE [Concomitant]
     Active Substance: TEMOZOLOMIDE
     Indication: Central nervous system neoplasm
     Dosage: 200MG D1-5
     Dates: start: 20231028

REACTIONS (9)
  - Depressed level of consciousness [Not Recovered/Not Resolved]
  - Acute kidney injury [Not Recovered/Not Resolved]
  - Gastrointestinal haemorrhage [Not Recovered/Not Resolved]
  - Myelosuppression [Not Recovered/Not Resolved]
  - Liver injury [Not Recovered/Not Resolved]
  - Somnolence [Not Recovered/Not Resolved]
  - Stomatitis [Not Recovered/Not Resolved]
  - Gastric mucosal lesion [Not Recovered/Not Resolved]
  - Infection [Not Recovered/Not Resolved]

NARRATIVE: CASE EVENT DATE: 20231101
